FAERS Safety Report 7570421-7 (Version None)
Quarter: 2011Q2

REPORT INFORMATION
  Report Type: 
  Country: None (occurrence: None)
  Receive Date: 20110624
  Receipt Date: 20110301
  Transmission Date: 20111010
  Serious: No
  Sender: FDA-Public Use
  Company Number: US-ALLERGAN-0913710US

PATIENT
  Age: 68 Year
  Sex: Female

DRUGS (4)
  1. EYELASH TINTING [Concomitant]
  2. VISINE EYE DROPS [Concomitant]
     Dosage: UNK
     Route: 047
  3. LATISSE [Suspect]
     Indication: GROWTH OF EYELASHES
     Dosage: 1 GTT, QHS
     Route: 061
     Dates: start: 20090401
  4. LATISSE [Suspect]
     Dosage: 1 GTT, QHS

REACTIONS (5)
  - APPLICATION SITE PAIN [None]
  - EYELID OEDEMA [None]
  - MADAROSIS [None]
  - HAIR GROWTH ABNORMAL [None]
  - TRICHORRHEXIS [None]
